FAERS Safety Report 12278315 (Version 1)
Quarter: 2016Q2

REPORT INFORMATION
  Report Type: Spontaneous
  Country: US (occurrence: US)
  Receive Date: 20160418
  Receipt Date: 20160418
  Transmission Date: 20160815
  Serious: No
  Sender: FDA-Public Use
  Company Number: US-BRISTOL-MYERS SQUIBB COMPANY-BMS-2016-029036

PATIENT
  Sex: Male

DRUGS (2)
  1. YERVOY [Suspect]
     Active Substance: IPILIMUMAB
     Indication: HEPATIC NEOPLASM
     Dosage: 370 MG, Q3WK
     Route: 042
  2. YERVOY [Suspect]
     Active Substance: IPILIMUMAB
     Indication: CHOLANGIOCARCINOMA

REACTIONS (4)
  - Nausea [Unknown]
  - Off label use [Unknown]
  - Constipation [Unknown]
  - Pruritus [Unknown]
